FAERS Safety Report 18088330 (Version 3)
Quarter: 2020Q3

REPORT INFORMATION
  Report Type: Spontaneous
  Country: IT (occurrence: IT)
  Receive Date: 20200729
  Receipt Date: 20200805
  Transmission Date: 20201103
  Serious: Yes (Life-Threatening)
  Sender: FDA-Public Use
  Company Number: IT-JNJFOC-20200728326

PATIENT
  Age: 35 Year
  Sex: Female

DRUGS (3)
  1. RISPERIDONE AUROBINDO [Suspect]
     Active Substance: RISPERIDONE
     Indication: SCHIZOPHRENIA
     Route: 048
     Dates: start: 20171106, end: 20171207
  2. DEPAKIN [Concomitant]
     Active Substance: VALPROATE SODIUM
  3. RISPERDAL [Suspect]
     Active Substance: RISPERIDONE
     Indication: SCHIZOPHRENIA
     Route: 048
     Dates: start: 20171106, end: 20171207

REACTIONS (2)
  - Schizophrenia [Recovered/Resolved]
  - Treatment noncompliance [Recovered/Resolved]

NARRATIVE: CASE EVENT DATE: 20171202
